FAERS Safety Report 6850520-5 (Version None)
Quarter: 2010Q3

REPORT INFORMATION
  Report Type: 
  Country: None (occurrence: None)
  Receive Date: 20100716
  Receipt Date: 20071020
  Transmission Date: 20110219
  Serious: No
  Sender: FDA-Public Use
  Company Number: US-PFIZER INC-2007088633

PATIENT
  Sex: Female
  Weight: 55.454 kg

DRUGS (1)
  1. CHANTIX [Suspect]
     Indication: SMOKING CESSATION THERAPY
     Dosage: 0.5MG QD EVERYDAY TDD:0.5MG
     Dates: start: 20070901

REACTIONS (8)
  - BONE PAIN [None]
  - FLUSHING [None]
  - MALAISE [None]
  - MIGRAINE [None]
  - MYALGIA [None]
  - PLATELET COUNT DECREASED [None]
  - PYREXIA [None]
  - WHITE BLOOD CELL COUNT DECREASED [None]
